FAERS Safety Report 10618933 (Version 1)
Quarter: 2014Q4

REPORT INFORMATION
  Report Type: Spontaneous
  Country: GB (occurrence: None)
  Receive Date: 20141126
  Receipt Date: 20141126
  Transmission Date: 20150529
  Serious: Yes (Hospitalization, Other)
  Sender: FDA-Public Use
  Company Number: GB-DEXPHARM-20140900

PATIENT
  Age: 86 Year
  Sex: Female

DRUGS (8)
  1. IRBESARTAN. [Suspect]
     Active Substance: IRBESARTAN
     Indication: ESSENTIAL HYPERTENSION
     Dosage: SEP. DOSAGES / INTERVAL 1 IN 1 DAYS
     Route: 048
     Dates: end: 20120320
  2. VITAMIN B12 [Concomitant]
     Active Substance: CYANOCOBALAMIN
  3. ATENOLOL. [Concomitant]
     Active Substance: ATENOLOL
  4. FELODIPINE. [Concomitant]
     Active Substance: FELODIPINE
  5. PARACETAMOL [Concomitant]
     Active Substance: ACETAMINOPHEN
  6. ALENDRONIC ACID [Concomitant]
     Active Substance: ALENDRONIC ACID
  7. DICLOFENAC [Suspect]
     Active Substance: DICLOFENAC
     Route: 048
     Dates: start: 20120320
  8. CALCICHEW D3 [Concomitant]
     Active Substance: CALCIUM\CHOLECALCIFEROL

REACTIONS (4)
  - Acute kidney injury [None]
  - Drug interaction [None]
  - Diarrhoea [None]
  - Hyperkalaemia [None]

NARRATIVE: CASE EVENT DATE: 20120319
